FAERS Safety Report 6752464-6 (Version None)
Quarter: 2010Q2

REPORT INFORMATION
  Report Type: 
  Country: None (occurrence: None)
  Receive Date: 20100601
  Receipt Date: 20100601
  Transmission Date: 20101027
  Serious: No
  Sender: FDA-Public Use
  Company Number: None

PATIENT
  Age: 62 Year
  Sex: Male
  Weight: 84.369 kg

DRUGS (1)
  1. LEXAPRO [Suspect]
     Indication: DEPRESSION
     Dosage: 1 1/2 TABLETS DAILY PO
     Route: 048
     Dates: start: 20090101, end: 20090501

REACTIONS (6)
  - DRY MOUTH [None]
  - LIP DRY [None]
  - MUSCLE CONTRACTIONS INVOLUNTARY [None]
  - SALIVARY HYPERSECRETION [None]
  - SENSATION OF PRESSURE [None]
  - SPEECH DISORDER [None]
